FAERS Safety Report 8863363 (Version 1)
Quarter: 2012Q4

REPORT INFORMATION
  Report Type: 
  Country: CN (occurrence: CN)
  Receive Date: 20121025
  Receipt Date: 20121025
  Transmission Date: 20130627
  Serious: Yes (Other)
  Sender: FDA-Public Use
  Company Number: CN-GLAXOSMITHKLINE-B0839974A

PATIENT
  Age: 23 Year
  Sex: Female
  Weight: 57 kg

DRUGS (1)
  1. CEFUROXIME SODIUM [Suspect]
     Indication: POST PROCEDURAL INFECTION
     Dosage: 1.5G Twice per day
     Route: 042
     Dates: start: 20110406, end: 20110406

REACTIONS (2)
  - Anaphylactoid reaction [Recovering/Resolving]
  - Pruritus [Recovering/Resolving]
